FAERS Safety Report 4393901-4 (Version None)
Quarter: 2004Q3

REPORT INFORMATION
  Report Type: 
  Country: None (occurrence: None)
  Receive Date: 20040702
  Receipt Date: 20040622
  Transmission Date: 20050211
  Serious: Yes (Congenital Anomaly)
  Sender: FDA-Public Use
  Company Number: 04P-163-0261649-00

PATIENT
  Sex: Female
  Weight: 1.55 kg

DRUGS (1)
  1. KALETRA [Suspect]

REACTIONS (5)
  - ARACHNOID CYST [None]
  - CONGENITAL ANOMALY [None]
  - DRUG EXPOSURE DURING PREGNANCY [None]
  - INTRAVENTRICULAR HAEMORRHAGE NEONATAL [None]
  - PREMATURE BABY [None]
